FAERS Safety Report 6754278-X (Version None)
Quarter: 2010Q2

REPORT INFORMATION
  Report Type: 
  Country: None (occurrence: None)
  Receive Date: 20100603
  Receipt Date: 20100528
  Transmission Date: 20101027
  Serious: Yes (Life-Threatening, Hospitalization)
  Sender: FDA-Public Use
  Company Number: GB-MERCK-1006GBR00006

PATIENT
  Age: 90 Year
  Sex: Female

DRUGS (4)
  1. FOSAMAX [Suspect]
     Route: 048
     Dates: end: 20100517
  2. AMLODIPINE [Concomitant]
     Indication: HYPERTENSION
     Route: 048
  3. AMOXICILLIN [Concomitant]
     Indication: INFECTION
     Route: 048
     Dates: start: 20100517
  4. ASPIRIN [Suspect]
     Route: 048
     Dates: end: 20100517

REACTIONS (2)
  - HAEMOGLOBIN DECREASED [None]
  - OESOPHAGITIS [None]
